FAERS Safety Report 20845293 (Version 1)
Quarter: 2022Q2

REPORT INFORMATION
  Report Type: Spontaneous
  Country: US (occurrence: US)
  Receive Date: 20220518
  Receipt Date: 20220518
  Transmission Date: 20220720
  Serious: No
  Sender: FDA-Public Use
  Company Number: US-BION-010305

PATIENT

DRUGS (1)
  1. IBUPROFEN MINIS [Suspect]
     Active Substance: IBUPROFEN
     Indication: Back pain
     Dosage: TAKE 4 PILLS EVERY 8 HOURS

REACTIONS (1)
  - Incorrect dose administered [Not Recovered/Not Resolved]
